FAERS Safety Report 18098140 (Version 1)
Quarter: 2020Q3

REPORT INFORMATION
  Report Type: Spontaneous
  Country: US (occurrence: US)
  Receive Date: 20200731
  Receipt Date: 20200731
  Transmission Date: 20201103
  Serious: Yes (Hospitalization)
  Sender: FDA-Public Use
  Company Number: None

PATIENT
  Age: 31 Year
  Sex: Male
  Weight: 89.7 kg

DRUGS (5)
  1. TAXOL [Suspect]
     Active Substance: PACLITAXEL
     Dates: end: 20200529
  2. IFOSFAMIDE. [Suspect]
     Active Substance: IFOSFAMIDE
     Dates: end: 20200531
  3. CARBOPLATIN. [Suspect]
     Active Substance: CARBOPLATIN
     Dates: end: 20200712
  4. ETOPOSIDE (VP?16) [Suspect]
     Active Substance: ETOPOSIDE
     Dates: end: 20200712
  5. NEULASTA [Suspect]
     Active Substance: PEGFILGRASTIM
     Dates: end: 20200714

REACTIONS (4)
  - Blood bilirubin increased [None]
  - Muscle spasms [None]
  - Abdominal pain lower [None]
  - International normalised ratio increased [None]

NARRATIVE: CASE EVENT DATE: 20200720
